FAERS Safety Report 6271385-9 (Version None)
Quarter: 2009Q3

REPORT INFORMATION
  Report Type: 
  Country: None (occurrence: None)
  Receive Date: 20090717
  Receipt Date: 20090707
  Transmission Date: 20100115
  Serious: Yes (Hospitalization)
  Sender: FDA-Public Use
  Company Number: NL-ROCHE-642347

PATIENT
  Sex: Male

DRUGS (8)
  1. CAPECITABINE [Suspect]
     Indication: COLORECTAL CANCER
     Route: 048
     Dates: start: 20090116, end: 20090313
  2. BEVACIZUMAB [Suspect]
     Indication: COLORECTAL CANCER
     Route: 042
     Dates: start: 20090116, end: 20090227
  3. OXALIPLATIN [Suspect]
     Indication: COLORECTAL CANCER
     Route: 042
     Dates: start: 20090116, end: 20090227
  4. PARACETAMOL [Concomitant]
  5. TINZAPARINE [Concomitant]
  6. TRAMADOL HCL [Concomitant]
  7. FLUIMUCIL [Concomitant]
  8. IPRAMOL [Concomitant]

REACTIONS (2)
  - METASTASES TO LUNG [None]
  - PLEURAL EFFUSION [None]
